FAERS Safety Report 5069850-5 (Version None)
Quarter: 2006Q3

REPORT INFORMATION
  Report Type: 
  Country: None (occurrence: None)
  Receive Date: 20060731
  Receipt Date: 20060718
  Transmission Date: 20061208
  Serious: Yes (Life-Threatening, Hospitalization, Other)
  Sender: FDA-Public Use
  Company Number: 2006090096

PATIENT
  Age: 35 Year
  Sex: Male

DRUGS (2)
  1. LYRICA [Suspect]
     Indication: NEURALGIA
     Dosage: 50 MG (50 MG, 1 IN 1 D), ORAL
     Route: 048
  2. DIAMORPHINE (DIAMORPHINE) [Suspect]
     Indication: NEURALGIA

REACTIONS (4)
  - AUTOIMMUNE DISORDER [None]
  - MUSCULAR WEAKNESS [None]
  - PAIN [None]
  - RESPIRATORY FAILURE [None]
